FAERS Safety Report 5523350-4 (Version None)
Quarter: 2007Q4

REPORT INFORMATION
  Report Type: 
  Country: None (occurrence: None)
  Receive Date: 20071121
  Receipt Date: 20071115
  Transmission Date: 20080405
  Serious: Yes (Death, Hospitalization)
  Sender: FDA-Public Use
  Company Number: B0490152A

PATIENT
  Age: 74 Year
  Sex: Female

DRUGS (1)
  1. TYKERB [Suspect]
     Route: 065

REACTIONS (9)
  - DIARRHOEA [None]
  - DISEASE PROGRESSION [None]
  - FALL [None]
  - GENERAL PHYSICAL HEALTH DETERIORATION [None]
  - HAEMORRHAGE [None]
  - LARYNGITIS [None]
  - SPEECH DISORDER [None]
  - THROMBOCYTOPENIA [None]
  - VOMITING [None]
